FAERS Safety Report 6244597-8 (Version None)
Quarter: 2009Q2

REPORT INFORMATION
  Report Type: 
  Country: None (occurrence: None)
  Receive Date: 20090623
  Receipt Date: 20090608
  Transmission Date: 20091009
  Serious: Yes (Other)
  Sender: FDA-Public Use
  Company Number: 2009001732

PATIENT
  Sex: Male

DRUGS (1)
  1. TARCEVA [Suspect]
     Dosage: (150 MG), ORAL
     Route: 048

REACTIONS (2)
  - HYPERSENSITIVITY [None]
  - INTERSTITIAL LUNG DISEASE [None]
